FAERS Safety Report 20376572 (Version 15)
Quarter: 2024Q2

REPORT INFORMATION
  Report Type: Spontaneous
  Country: US (occurrence: US)
  Receive Date: 20220125
  Receipt Date: 20240514
  Transmission Date: 20240716
  Serious: No
  Sender: FDA-Public Use
  Company Number: US-SA-SAC20220115000004

PATIENT
  Age: 12 Year
  Sex: Male
  Weight: 55.782 kg

DRUGS (27)
  1. ALPROLIX [Suspect]
     Active Substance: EFTRENONACOG ALFA
     Indication: Factor IX deficiency
     Dosage: 1072 IU, QW
     Route: 042
  2. ALPROLIX [Suspect]
     Active Substance: EFTRENONACOG ALFA
     Indication: Factor IX deficiency
     Dosage: 1072 IU, QW
     Route: 042
  3. ALPROLIX [Suspect]
     Active Substance: EFTRENONACOG ALFA
     Dosage: 2096 IU, QW
     Route: 042
  4. ALPROLIX [Suspect]
     Active Substance: EFTRENONACOG ALFA
     Dosage: 2096 IU, QW
     Route: 042
  5. ALPROLIX [Suspect]
     Active Substance: EFTRENONACOG ALFA
     Dosage: 3000 IU, QW
     Route: 042
     Dates: start: 20210201
  6. ALPROLIX [Suspect]
     Active Substance: EFTRENONACOG ALFA
     Dosage: 3000 IU, QW
     Route: 042
     Dates: start: 20210201
  7. ALPROLIX [Suspect]
     Active Substance: EFTRENONACOG ALFA
     Dosage: 3000 U (2700-3300), QW (EVERY FRIDAY)
     Route: 042
     Dates: start: 20220112
  8. ALPROLIX [Suspect]
     Active Substance: EFTRENONACOG ALFA
     Dosage: 3000 U (2700-3300), QW (EVERY FRIDAY)
     Route: 042
     Dates: start: 20220112
  9. ALPROLIX [Suspect]
     Active Substance: EFTRENONACOG ALFA
     Dosage: 2096 IU, QW
     Route: 042
     Dates: start: 202201
  10. ALPROLIX [Suspect]
     Active Substance: EFTRENONACOG ALFA
     Dosage: 2096 IU, QW
     Route: 042
     Dates: start: 202201
  11. ALPROLIX [Suspect]
     Active Substance: EFTRENONACOG ALFA
     Dosage: 3000 U, QW (EVERY FRIDAY)
     Route: 042
     Dates: start: 202201
  12. ALPROLIX [Suspect]
     Active Substance: EFTRENONACOG ALFA
     Dosage: 3000 U, QW (EVERY FRIDAY)
     Route: 042
     Dates: start: 202201
  13. ALPROLIX [Suspect]
     Active Substance: EFTRENONACOG ALFA
     Dosage: 4000 U, QW (EVERY FRIDAY)
     Route: 042
     Dates: start: 202201
  14. ALPROLIX [Suspect]
     Active Substance: EFTRENONACOG ALFA
     Dosage: 4000 U, QW (EVERY FRIDAY)
     Route: 042
     Dates: start: 202201
  15. ALPROLIX [Suspect]
     Active Substance: EFTRENONACOG ALFA
     Dosage: 3000 U, QW (EVERY FRIDAY)
     Route: 042
     Dates: start: 202202
  16. ALPROLIX [Suspect]
     Active Substance: EFTRENONACOG ALFA
     Dosage: 3000 U, QW (EVERY FRIDAY)
     Route: 042
     Dates: start: 202202
  17. ALPROLIX [Suspect]
     Active Substance: EFTRENONACOG ALFA
     Dosage: 3000 U (2700-3300), QW (ONCE EVERY FRIDAY)
     Route: 041
     Dates: start: 202202
  18. ALPROLIX [Suspect]
     Active Substance: EFTRENONACOG ALFA
     Dosage: 3000 U (2700-3300), QW (ONCE EVERY FRIDAY)
     Route: 041
     Dates: start: 202202
  19. ALPROLIX [Suspect]
     Active Substance: EFTRENONACOG ALFA
     Dosage: 3000 IU, QW
     Route: 042
     Dates: start: 20220713
  20. ALPROLIX [Suspect]
     Active Substance: EFTRENONACOG ALFA
     Dosage: 3000 IU, QW
     Route: 042
     Dates: start: 20220713
  21. ALPROLIX [Suspect]
     Active Substance: EFTRENONACOG ALFA
     Dosage: 3000 IU, QW
     Route: 042
     Dates: start: 20220811
  22. ALPROLIX [Suspect]
     Active Substance: EFTRENONACOG ALFA
     Dosage: 3000 IU, QW
     Route: 042
     Dates: start: 20220811
  23. ALPROLIX [Suspect]
     Active Substance: EFTRENONACOG ALFA
     Dosage: 4000 U, QW ON A THURSDAY OR FRIDAY (EXACT DAY NOT KNOWN)
     Route: 042
  24. ALPROLIX [Suspect]
     Active Substance: EFTRENONACOG ALFA
     Dosage: 4000 U, QW ON A THURSDAY OR FRIDAY (EXACT DAY NOT KNOWN)
     Route: 042
  25. ALPROLIX [Suspect]
     Active Substance: EFTRENONACOG ALFA
     Dosage: 5000 U, PRN (FOR EPISODIC)
     Route: 042
     Dates: start: 20240412
  26. ALPROLIX [Suspect]
     Active Substance: EFTRENONACOG ALFA
     Dosage: 5000 U, PRN (FOR EPISODIC)
     Route: 042
     Dates: start: 20240412
  27. BENEFIX [Concomitant]
     Active Substance: COAGULATION FACTOR IX RECOMBINANT HUMAN\ISOPROPYL ALCOHOL
     Indication: Factor IX deficiency
     Dosage: TREATED ROUTINELY WITH BENEFIX

REACTIONS (14)
  - Limb injury [Recovered/Resolved]
  - Traumatic haemorrhage [Recovered/Resolved]
  - Epistaxis [Recovered/Resolved]
  - Fall [Unknown]
  - Weight increased [Unknown]
  - Peripheral swelling [Unknown]
  - Tendon disorder [Unknown]
  - Influenza [Unknown]
  - Epistaxis [Recovered/Resolved]
  - Contusion [Unknown]
  - Joint swelling [Unknown]
  - Epistaxis [Recovered/Resolved]
  - Epistaxis [Unknown]
  - Weight increased [Unknown]

NARRATIVE: CASE EVENT DATE: 20220101
